FAERS Safety Report 23419824 (Version 1)
Quarter: 2024Q1

REPORT INFORMATION
  Report Type: Spontaneous
  Country: IN (occurrence: IN)
  Receive Date: 20240119
  Receipt Date: 20240119
  Transmission Date: 20240410
  Serious: Yes (Hospitalization, Other)
  Sender: FDA-Public Use
  Company Number: IN-IPCA LABORATORIES LIMITED-IPC-2024-IN-000059

PATIENT

DRUGS (4)
  1. TRAMADOL [Suspect]
     Active Substance: TRAMADOL\TRAMADOL HYDROCHLORIDE
     Indication: Back pain
     Dosage: 50 MILLIGRAM, TID
     Route: 048
  2. TRAMADOL [Suspect]
     Active Substance: TRAMADOL\TRAMADOL HYDROCHLORIDE
     Indication: Insomnia
  3. ONDANSETRON [Suspect]
     Active Substance: ONDANSETRON
     Indication: Back pain
     Dosage: 4 MILLIGRAM, BID
     Route: 048
  4. ONDANSETRON [Suspect]
     Active Substance: ONDANSETRON
     Indication: Insomnia

REACTIONS (5)
  - Serotonin syndrome [Recovered/Resolved]
  - Rhabdomyolysis [Unknown]
  - Acute kidney injury [Recovered/Resolved]
  - Myoglobinuria [Unknown]
  - Therapeutic product effect increased [Unknown]
